FAERS Safety Report 6609640-2 (Version None)
Quarter: 2010Q1

REPORT INFORMATION
  Report Type: 
  Country: None (occurrence: None)
  Receive Date: 20100302
  Receipt Date: 20100216
  Transmission Date: 20100710
  Serious: Yes (Other)
  Sender: FDA-Public Use
  Company Number: JP-PFIZER INC-ENC200800204

PATIENT
  Age: 67 Year
  Sex: Female
  Weight: 45 kg

DRUGS (8)
  1. ARGATROBAN [Suspect]
     Indication: HEPARIN-INDUCED THROMBOCYTOPENIA
     Dosage: 4 MG/KG, UNK
     Route: 041
  2. ARGATROBAN [Suspect]
     Indication: ANTICOAGULANT THERAPY
     Dosage: 50 MG/HR
     Route: 042
  3. MIDAZOLAM [Concomitant]
     Indication: INDUCTION OF ANAESTHESIA
  4. FENTANYL [Concomitant]
     Indication: INDUCTION OF ANAESTHESIA
  5. ROCURONIUM [Concomitant]
     Indication: INDUCTION AND MAINTENANCE OF ANAESTHESIA
  6. SEVOFLURANE [Concomitant]
     Indication: MAINTENANCE OF ANAESTHESIA
  7. PROPOFOL [Concomitant]
     Indication: MAINTENANCE OF ANAESTHESIA
  8. REMIFENTANIL HYDROCHLORIDE [Concomitant]
     Indication: MAINTENANCE OF ANAESTHESIA

REACTIONS (4)
  - CARDIAC TAMPONADE [None]
  - COAGULATION TIME PROLONGED [None]
  - OPERATIVE HAEMORRHAGE [None]
  - POST PROCEDURAL HAEMORRHAGE [None]
